FAERS Safety Report 6810705-0 (Version None)
Quarter: 2010Q2

REPORT INFORMATION
  Report Type: 
  Country: None (occurrence: None)
  Receive Date: 20100630
  Receipt Date: 20071219
  Transmission Date: 20101027
  Serious: No
  Sender: FDA-Public Use
  Company Number: US-PFIZER INC-2007107620

PATIENT
  Sex: Female
  Weight: 79 kg

DRUGS (1)
  1. ESTRING [Suspect]
     Indication: VULVOVAGINAL DRYNESS
     Route: 067
     Dates: start: 20070801, end: 20071201

REACTIONS (3)
  - FEELING ABNORMAL [None]
  - IRRITABILITY [None]
  - MOOD SWINGS [None]
